FAERS Safety Report 24118631 (Version 1)
Quarter: 2024Q3

REPORT INFORMATION
  Report Type: Spontaneous
  Country: US (occurrence: US)
  Receive Date: 20240722
  Receipt Date: 20240722
  Transmission Date: 20241017
  Serious: No
  Sender: BRISTOL MYERS SQUIBB
  Company Number: US-BRISTOL-MYERS SQUIBB COMPANY-2024-115487

PATIENT
  Age: 84 Year
  Sex: Female
  Weight: 86.18 kg

DRUGS (1)
  1. LENALIDOMIDE [Suspect]
     Active Substance: LENALIDOMIDE
     Indication: 5q minus syndrome
     Dosage: D 1-21 Q 28 DAYS
     Route: 048
     Dates: start: 20230128

REACTIONS (1)
  - Red blood cell count abnormal [Not Recovered/Not Resolved]
